FAERS Safety Report 5194209-X (Version None)
Quarter: 2006Q4

REPORT INFORMATION
  Report Type: 
  Country: None (occurrence: None)
  Receive Date: 20061228
  Receipt Date: 20061128
  Transmission Date: 20070319
  Serious: Yes (Other)
  Sender: FDA-Public Use
  Company Number: BR-PFIZER INC-2006147550

PATIENT
  Sex: Male
  Weight: 84 kg

DRUGS (4)
  1. LIPITOR [Suspect]
     Indication: BLOOD CHOLESTEROL INCREASED
     Route: 048
  2. ASPIRIN [Concomitant]
     Route: 048
  3. SUSTRATE [Concomitant]
     Route: 048
     Dates: start: 20040101
  4. SELOZOK [Concomitant]
     Route: 048
     Dates: start: 20040101

REACTIONS (3)
  - ARTERIAL RUPTURE [None]
  - EYE DISORDER [None]
  - EYE PAIN [None]
